FAERS Safety Report 9059044 (Version 1)
Quarter: 2013Q1

REPORT INFORMATION
  Report Type: Spontaneous
  Country: US (occurrence: US)
  Receive Date: 20130211
  Receipt Date: 20130211
  Transmission Date: 20140127
  Serious: No
  Sender: FDA-Public Use
  Company Number: US-BRISTOL-MYERS SQUIBB COMPANY-16646283

PATIENT
  Sex: 0

DRUGS (1)
  1. GLUCOPHAGE [Suspect]
     Dosage: 500MG ONCE DAILY FOR 5-7 ANOTHER 500MG 3-5 DAYS ANOTHER 500MG FOR 3-5 DAYS

REACTIONS (2)
  - Diarrhoea [Unknown]
  - Abdominal pain upper [Unknown]
